FAERS Safety Report 25659420 (Version 1)
Quarter: 2025Q3

REPORT INFORMATION
  Report Type: Spontaneous
  Country: US (occurrence: None)
  Receive Date: 20250807
  Receipt Date: 20250807
  Transmission Date: 20251020
  Serious: Yes (Hospitalization)
  Sender: FDA-CTU
  Company Number: None

PATIENT
  Age: 68 Year
  Sex: Female

DRUGS (6)
  1. ODEFSEY [Suspect]
     Active Substance: EMTRICITABINE\RILPIVIRINE HYDROCHLORIDE\TENOFOVIR ALAFENAMIDE FUMARATE
     Indication: HIV infection
     Dosage: OTHER QUANTITY : 200-25-25 MG;?FREQUENCY : DAILY;?
     Route: 048
     Dates: start: 20250422
  2. TIVICAY [Suspect]
     Active Substance: DOLUTEGRAVIR SODIUM
  3. ENSURE ACTIVE HP VANILLA LIQUID [Concomitant]
  4. ASPIRIN 81MG CHEWABLE [Concomitant]
  5. PLETAL [Concomitant]
     Active Substance: CILOSTAZOL
  6. POTASSIUM CHLORIDE [Concomitant]
     Active Substance: POTASSIUM CHLORIDE

REACTIONS (1)
  - Pneumonia [None]

NARRATIVE: CASE EVENT DATE: 20250707
